FAERS Safety Report 5695295-0 (Version None)
Quarter: 2008Q2

REPORT INFORMATION
  Report Type: 
  Country: None (occurrence: None)
  Receive Date: 20080404
  Receipt Date: 20080327
  Transmission Date: 20081010
  Serious: Yes (Other)
  Sender: FDA-Public Use
  Company Number: JP-PFIZER INC-2008028175

PATIENT
  Sex: Female

DRUGS (1)
  1. ZITHROMAX [Suspect]
     Route: 048

REACTIONS (1)
  - VAGINAL HAEMORRHAGE [None]
